FAERS Safety Report 8514734 (Version 2)
Quarter: 2014Q4

REPORT INFORMATION
  Report Type: Report from Study
  Country: AU (occurrence: AU)
  Receive Date: 20120416
  Receipt Date: 20141212
  Transmission Date: 20150529
  Serious: Yes (Other)
  Sender: FDA-Public Use
  Company Number: AU-PFIZER INC-2012086342

PATIENT

DRUGS (1)
  1. REVATIO [Suspect]
     Active Substance: SILDENAFIL CITRATE
     Indication: BRONCHOPULMONARY DYSPLASIA
     Dosage: 1 MG/KG, 3X/DAY
     Route: 048

REACTIONS (1)
  - Hypotension [Unknown]
